FAERS Safety Report 5145455-2 (Version None)
Quarter: 2006Q4

REPORT INFORMATION
  Report Type: 
  Country: None (occurrence: None)
  Receive Date: 20061101
  Receipt Date: 20061019
  Transmission Date: 20070319
  Serious: Yes (Other)
  Sender: FDA-Public Use
  Company Number: 231088

PATIENT
  Age: 43 Year
  Sex: Female

DRUGS (4)
  1. RITUXAN [Suspect]
     Indication: DIFFUSE LARGE B-CELL LYMPHOMA
     Dosage: 1/WEEK
     Dates: start: 20050911, end: 20060201
  2. RITUXAN [Suspect]
     Indication: DIFFUSE LARGE B-CELL LYMPHOMA
     Dosage: 1/WEEK
     Dates: start: 20061010
  3. CYCLOPHOSPHAMIDE [Concomitant]
  4. PREDNISONE TAB [Concomitant]

REACTIONS (8)
  - ABASIA [None]
  - COORDINATION ABNORMAL [None]
  - DIPLOPIA [None]
  - IMPAIRED GASTRIC EMPTYING [None]
  - MYOPATHY [None]
  - PARALYSIS [None]
  - PARANEOPLASTIC SYNDROME [None]
  - WEIGHT DECREASED [None]
